FAERS Safety Report 9314186 (Version 1)
Quarter: 2013Q2

REPORT INFORMATION
  Report Type: Spontaneous
  Country: FR (occurrence: None)
  Receive Date: 20130521
  Receipt Date: 20130521
  Transmission Date: 20140414
  Serious: Yes (Hospitalization)
  Sender: FDA-Public Use
  Company Number: 1695102

PATIENT
  Sex: 0

DRUGS (3)
  1. CARBOPLATIN [Suspect]
     Indication: OVARIAN EPITHELIAL CANCER
     Route: 042
     Dates: start: 20121008, end: 20121008
  2. (GEMZAR) [Concomitant]
  3. (AVASTIN   /00848101/) [Concomitant]

REACTIONS (7)
  - Flushing [None]
  - Nausea [None]
  - Abdominal pain [None]
  - Tachycardia [None]
  - Erythema [None]
  - Drug hypersensitivity [None]
  - Infusion related reaction [None]
